FAERS Safety Report 5428772-8 (Version None)
Quarter: 2007Q3

REPORT INFORMATION
  Report Type: 
  Country: None (occurrence: None)
  Receive Date: 20070829
  Receipt Date: 20070822
  Transmission Date: 20080115
  Serious: Yes (Hospitalization, Other)
  Sender: FDA-Public Use
  Company Number: PHBS2007HR14023

PATIENT
  Age: 62 Year
  Sex: Female

DRUGS (1)
  1. CYCLOSPORINE [Suspect]
     Indication: LIVER TRANSPLANT
     Route: 065

REACTIONS (3)
  - LIVER TRANSPLANT REJECTION [None]
  - MAJOR DEPRESSION [None]
  - TRANSAMINASES INCREASED [None]
